FAERS Safety Report 7086104-6 (Version None)
Quarter: 2010Q4

REPORT INFORMATION
  Report Type: 
  Country: None (occurrence: None)
  Receive Date: 20101105
  Receipt Date: 20100831
  Transmission Date: 20110411
  Serious: Yes (Hospitalization)
  Sender: FDA-Public Use
  Company Number: B0650417A

PATIENT
  Sex: Male

DRUGS (5)
  1. ARTIST [Suspect]
     Indication: HYPERTENSION
     Dosage: 2.5MG PER DAY
     Route: 048
     Dates: start: 20100202, end: 20100330
  2. BEPRICOR [Suspect]
     Indication: PRODUCT USED FOR UNKNOWN INDICATION
     Dosage: 100MG PER DAY
     Route: 048
     Dates: start: 20100202, end: 20100330
  3. AMLODIPINE [Concomitant]
  4. BLOPRESS [Concomitant]
  5. WARFARIN SODIUM [Concomitant]
     Dates: start: 20100119, end: 20100330

REACTIONS (1)
  - TORSADE DE POINTES [None]
